FAERS Safety Report 9376787 (Version 3)
Quarter: 2014Q1

REPORT INFORMATION
  Report Type: Report from Study
  Country: CA (occurrence: CA)
  Receive Date: 20130701
  Receipt Date: 20140113
  Transmission Date: 20141002
  Serious: Yes (Other)
  Sender: FDA-Public Use
  Company Number: CA-UCBSA-090254

PATIENT
  Age: 78 Year
  Sex: Female
  Weight: 81 kg

DRUGS (22)
  1. CIMZIA [Suspect]
     Indication: RHEUMATOID ARTHRITIS
     Route: 058
     Dates: start: 20130419, end: 20130527
  2. CIMZIA [Suspect]
     Indication: RHEUMATOID ARTHRITIS
     Route: 058
     Dates: start: 201305, end: 20130612
  3. CIMZIA [Suspect]
     Indication: RHEUMATOID ARTHRITIS
     Dates: start: 2013
  4. FOLIC ACID [Concomitant]
  5. DILTAZEM [Concomitant]
  6. PREDNISONE [Concomitant]
     Indication: RHEUMATOID ARTHRITIS
     Route: 048
     Dates: start: 2001
  7. VASTIN [Concomitant]
  8. BETOPTIC [Concomitant]
     Dosage: EYE GTTS
  9. LACROLUB [Concomitant]
     Dosage: QHS
  10. ELAVIL [Concomitant]
     Dosage: EVERY NIGHT AT BEDTIME
     Route: 048
  11. CALCIUM [Concomitant]
  12. MAGNESIUM [Concomitant]
  13. VITAMIN C [Concomitant]
  14. VITAMIN D [Concomitant]
  15. OMEGA 3 [Concomitant]
  16. SALMON OIL [Concomitant]
  17. ISOPTO TEARS [Concomitant]
  18. METHOTREXATE [Concomitant]
     Indication: RHEUMATOID ARTHRITIS
     Dosage: 0.8 CC
     Route: 058
     Dates: start: 2000
  19. PLAQUENIL [Concomitant]
     Indication: RHEUMATOID ARTHRITIS
     Route: 048
     Dates: start: 1990
  20. SENIOURS MVI [Concomitant]
     Dosage: UNKNOWN DOSE
  21. VALCYCLOVIR [Concomitant]
     Indication: HERPES ZOSTER
     Route: 048
  22. VALCYCLOVIR [Concomitant]
     Indication: HERPES ZOSTER
     Route: 048

REACTIONS (3)
  - Herpes zoster [Not Recovered/Not Resolved]
  - Urinary tract infection [Recovered/Resolved]
  - Occult blood [Recovered/Resolved]
